FAERS Safety Report 24754612 (Version 1)
Quarter: 2024Q4

REPORT INFORMATION
  Report Type: Spontaneous
  Country: CA (occurrence: CA)
  Receive Date: 20241219
  Receipt Date: 20241219
  Transmission Date: 20250115
  Serious: No
  Sender: PFIZER
  Company Number: CA-PFIZER INC-202400320072

PATIENT
  Age: 27 Year
  Sex: Female

DRUGS (1)
  1. ABRILADA [Suspect]
     Active Substance: ADALIMUMAB-AFZB
     Indication: Hidradenitis
     Dosage: 160MG W0, 80MG W2 THEN 40MG Q WEEK STARTING W4
     Route: 058
     Dates: start: 20241203

REACTIONS (1)
  - Injection site pain [Unknown]
